FAERS Safety Report 20846945 (Version 1)
Quarter: 2022Q2

REPORT INFORMATION
  Report Type: Report from Study
  Country: NL (occurrence: NL)
  Receive Date: 20220519
  Receipt Date: 20220519
  Transmission Date: 20220721
  Serious: Yes (Hospitalization, Other)
  Sender: FDA-Public Use
  Company Number: NL-ABBVIE-22K-114-4399915-00

PATIENT
  Age: 46 Year
  Sex: Female

DRUGS (2)
  1. LEUPROLIDE ACETATE [Suspect]
     Active Substance: LEUPROLIDE ACETATE
     Indication: Menstrual disorder
     Route: 065
  2. TESTOSTERONE [Concomitant]
     Active Substance: TESTOSTERONE
     Indication: Menstrual disorder

REACTIONS (4)
  - Leiomyoma [Unknown]
  - Hysterectomy [Unknown]
  - Oophorectomy [Unknown]
  - Menstrual disorder [Unknown]

NARRATIVE: CASE EVENT DATE: 20210101
